FAERS Safety Report 24419621 (Version 1)
Quarter: 2024Q4

REPORT INFORMATION
  Report Type: Spontaneous
  Country: BE (occurrence: BE)
  Receive Date: 20241010
  Receipt Date: 20241010
  Transmission Date: 20250114
  Serious: Yes (Hospitalization)
  Sender: CHEPLAPHARM
  Company Number: BE-EUROCEPT-EC20240182

PATIENT
  Age: 53 Year
  Sex: Female

DRUGS (1)
  1. OLANZAPINE [Suspect]
     Active Substance: OLANZAPINE
     Indication: Nausea
     Dosage: ONCE, 1/2 OF THE 10 MG, IN THE NIGHT?DAILY DOSE: 0.5 DOSAGE FORM
     Dates: start: 20240325

REACTIONS (7)
  - Dysarthria [Not Recovered/Not Resolved]
  - Asthenia [Unknown]
  - Dysstasia [Unknown]
  - Neck pain [Unknown]
  - Headache [Unknown]
  - Slow speech [Unknown]
  - Off label use [Unknown]

NARRATIVE: CASE EVENT DATE: 20240325
